FAERS Safety Report 9071086 (Version 1)
Quarter: 2013Q1

REPORT INFORMATION
  Report Type: Report from Study
  Country: US (occurrence: US)
  Receive Date: 20130129
  Receipt Date: 20130129
  Transmission Date: 20140127
  Serious: No
  Sender: FDA-Public Use
  Company Number: US-ABBOTT-12P-163-0922537-00

PATIENT
  Age: 58 None
  Sex: Female
  Weight: 70.37 kg

DRUGS (15)
  1. HUMIRA 40 MG/0.8 ML PEN [Suspect]
     Indication: RHEUMATOID ARTHRITIS
     Dates: start: 2007
  2. METHOTREXATE [Concomitant]
     Indication: RHEUMATOID ARTHRITIS
  3. KLONOPIN [Concomitant]
     Indication: ANXIETY
  4. LORTAB [Concomitant]
     Indication: PAIN
  5. FLEXARIL [Concomitant]
     Indication: PAIN
  6. FOLIC ACID [Concomitant]
     Indication: VITAMIN SUPPLEMENTATION
  7. NEURONTIN [Concomitant]
     Indication: PAIN
  8. SYNTHROID [Concomitant]
     Indication: HYPOTHYROIDISM
  9. CYMBALTA [Concomitant]
     Indication: DEPRESSION
  10. LISINOPRIL [Concomitant]
     Indication: HYPERTENSION
  11. METOPROLOL [Concomitant]
     Indication: HYPERTENSION
  12. HCTZ [Concomitant]
     Indication: HYPERTENSION
  13. RELEFAN [Concomitant]
     Indication: PAIN
  14. ZPACK [Concomitant]
     Indication: SINUS DISORDER
     Dates: start: 201203, end: 20120403
  15. HYDROCODONE [Concomitant]
     Indication: COUGH
     Dates: start: 201203

REACTIONS (6)
  - Cough [Not Recovered/Not Resolved]
  - Ear pain [Recovering/Resolving]
  - Oropharyngeal pain [Recovering/Resolving]
  - Sinus headache [Recovering/Resolving]
  - Injection site pain [Not Recovered/Not Resolved]
  - Laryngitis [Recovering/Resolving]
